FAERS Safety Report 5069777-9 (Version None)
Quarter: 2006Q3

REPORT INFORMATION
  Report Type: 
  Country: None (occurrence: None)
  Receive Date: 20060803
  Receipt Date: 20060119
  Transmission Date: 20061208
  Serious: Yes (Life-Threatening, Hospitalization)
  Sender: FDA-Public Use
  Company Number: FR-LMS-060014

PATIENT
  Age: 79 Year
  Sex: Female

DRUGS (6)
  1. NABUMETONE [Suspect]
     Indication: ARTHRALGIA
     Dosage: 1G TWICE PER DAY
     Route: 048
     Dates: start: 20051220
  2. LOVENOX [Suspect]
     Indication: PHLEBITIS
     Dosage: .4ML PER DAY
     Route: 058
     Dates: start: 20051229
  3. MESALAZINE [Concomitant]
     Indication: COLITIS ULCERATIVE
     Route: 048
  4. CELECTOL [Concomitant]
     Indication: HYPERTENSION
     Route: 048
     Dates: start: 20050101
  5. CRESTOR [Concomitant]
     Indication: HYPERCHOLESTEROLAEMIA
     Dosage: 10MG PER DAY
     Route: 048
  6. PRETERAX [Concomitant]
     Indication: HYPERTENSION
     Route: 048

REACTIONS (2)
  - DRUG INTERACTION [None]
  - GASTROINTESTINAL HAEMORRHAGE [None]
